FAERS Safety Report 23879021 (Version 5)
Quarter: 2025Q3

REPORT INFORMATION
  Report Type: Report from Study
  Country: CO (occurrence: CO)
  Receive Date: 20240521
  Receipt Date: 20250818
  Transmission Date: 20251021
  Serious: Yes (Hospitalization, Other)
  Sender: NOVARTIS
  Company Number: CO-002147023-NVSC2024CO106761

PATIENT
  Age: 65 Year
  Sex: Female
  Weight: 70 kg

DRUGS (3)
  1. COSENTYX [Suspect]
     Active Substance: SECUKINUMAB
     Indication: Ankylosing spondylitis
     Dosage: 300 MG, QMO
     Route: 058
     Dates: start: 20191120
  2. COSENTYX [Suspect]
     Active Substance: SECUKINUMAB
     Route: 065
     Dates: start: 20240612
  3. COSENTYX [Suspect]
     Active Substance: SECUKINUMAB
     Dosage: 300 MG, QMO
     Route: 065

REACTIONS (20)
  - Blood pressure increased [Recovered/Resolved]
  - Pneumonia [Unknown]
  - Tuberculosis [Unknown]
  - Ankylosing spondylitis [Unknown]
  - Influenza [Unknown]
  - Decreased immune responsiveness [Recovered/Resolved]
  - Cystitis [Recovered/Resolved]
  - Infection susceptibility increased [Recovered/Resolved]
  - Viral infection [Unknown]
  - Herpes zoster [Unknown]
  - Gingival disorder [Recovered/Resolved]
  - Pyrexia [Recovered/Resolved]
  - Arthralgia [Recovered/Resolved]
  - Lung disorder [Recovered/Resolved]
  - Cough [Recovered/Resolved]
  - Pain [Recovered/Resolved]
  - Illness [Unknown]
  - Malaise [Unknown]
  - Pain [Recovered/Resolved]
  - Apathy [Recovered/Resolved]

NARRATIVE: CASE EVENT DATE: 20240501
